FAERS Safety Report 6556900-X (Version None)
Quarter: 2010Q1

REPORT INFORMATION
  Report Type: 
  Country: None (occurrence: None)
  Receive Date: 20100126
  Receipt Date: 20100113
  Transmission Date: 20100710
  Serious: Yes (Hospitalization)
  Sender: FDA-Public Use
  Company Number: 060001L10JPN

PATIENT
  Age: 42 Year
  Sex: Male

DRUGS (1)
  1. CLOMIPHENE CITRATE [Suspect]
     Indication: INFERTILITY MALE
     Dosage: ORAL
     Route: 048

REACTIONS (4)
  - BALANCE DISORDER [None]
  - CEREBELLAR INFARCTION [None]
  - HYPOKINESIA [None]
  - VISUAL IMPAIRMENT [None]
